FAERS Safety Report 6462729-3 (Version None)
Quarter: 2009Q4

REPORT INFORMATION
  Report Type: 
  Country: None (occurrence: None)
  Receive Date: 20091130
  Receipt Date: 20091118
  Transmission Date: 20100525
  Serious: Yes (Hospitalization)
  Sender: FDA-Public Use
  Company Number: NL-WYE-H09362009

PATIENT
  Sex: Male

DRUGS (4)
  1. PANTOZOL [Suspect]
     Indication: ABDOMINAL PAIN
     Dosage: 40 MG,FREQUENCY UNKNOWN
     Route: 048
     Dates: start: 20080101
  2. CAPTOPRIL [Concomitant]
  3. SIMVASTATIN [Concomitant]
  4. LANSOPRAZOLE [Suspect]
     Indication: ABDOMINAL PAIN
     Dosage: 30 MG, FREQUENCY UNKNOWN
     Route: 048
     Dates: start: 20080101

REACTIONS (3)
  - HYPOCALCAEMIA [None]
  - HYPOKALAEMIA [None]
  - HYPOMAGNESAEMIA [None]
